FAERS Safety Report 6288537-4 (Version None)
Quarter: 2009Q3

REPORT INFORMATION
  Report Type: 
  Country: None (occurrence: None)
  Receive Date: 20090729
  Receipt Date: 20090723
  Transmission Date: 20100115
  Serious: Yes (Hospitalization)
  Sender: FDA-Public Use
  Company Number: US-GILEAD-2009-0021360

PATIENT
  Sex: Female

DRUGS (16)
  1. LETAIRIS [Suspect]
     Indication: PULMONARY ARTERIAL HYPERTENSION
     Route: 048
     Dates: start: 20081205
  2. REVATIO [Concomitant]
     Dates: start: 20050901
  3. TOPROL-XL [Concomitant]
  4. PLAVIX [Concomitant]
  5. FUROSEMIDE [Concomitant]
  6. ALDACTONE [Concomitant]
  7. MEDROL [Concomitant]
  8. TRICOR [Concomitant]
  9. POTASSIUM CHLORIDE [Concomitant]
  10. ZETIA [Concomitant]
  11. FLEXERIL [Concomitant]
  12. CELLCEPT [Concomitant]
  13. LANTUS [Concomitant]
  14. JANUVIA [Concomitant]
  15. PROCRIT [Concomitant]
  16. MAGNESIUM OXIDE [Concomitant]

REACTIONS (3)
  - COLITIS [None]
  - DIARRHOEA [None]
  - INFLUENZA [None]
